FAERS Safety Report 17053676 (Version 1)
Quarter: 2019Q4

REPORT INFORMATION
  Report Type: Spontaneous
  Country: US (occurrence: US)
  Receive Date: 20191120
  Receipt Date: 20191120
  Transmission Date: 20200122
  Serious: Yes (Other)
  Sender: FDA-Public Use
  Company Number: None

PATIENT
  Age: 46 Year
  Sex: Female

DRUGS (15)
  1. TOPIRAMATE TAB 50 MG [Concomitant]
  2. DULOXETINE CAP 60 MG [Concomitant]
  3. NYSTATIN CRE 100000 [Concomitant]
     Active Substance: NYSTATIN
  4. GLATIRAMER [Suspect]
     Active Substance: GLATIRAMER
     Indication: MULTIPLE SCLEROSIS
     Dosage: ?          OTHER FREQUENCY:3 TIMES WEEKLY;?
     Route: 058
     Dates: start: 20190415
  5. VITAMIN B12 TAB 100 MCG [Concomitant]
  6. SMZ/TMP DS TAB 800-160 [Concomitant]
     Active Substance: SULFAMETHOXAZOLE\TRIMETHOPRIM
  7. PREGABALIN CAP 225 MG [Concomitant]
  8. VITAMIN D CAP 400 UNIT [Concomitant]
  9. MULTIVITAMIN TAB [Concomitant]
  10. MUPIROCIN OIN 2% [Concomitant]
  11. EMBEDA CAP 30-1.2 MG [Concomitant]
  12. POTASSIUM TAB 99 MG [Concomitant]
  13. HYDROMORPHON TAB 8 MG [Concomitant]
  14. RELISTOR TAB 150 MG [Concomitant]
  15. RIZATRIPTAN TAB 10 MG ODT [Concomitant]

REACTIONS (3)
  - Spinal operation [None]
  - Multiple sclerosis relapse [None]
  - Therapy cessation [None]
